FAERS Safety Report 8983797 (Version 2)
Quarter: 2013Q1

REPORT INFORMATION
  Report Type: Spontaneous
  Country: AU (occurrence: AU)
  Receive Date: 20121224
  Receipt Date: 20130109
  Transmission Date: 20140127
  Serious: Yes (Death)
  Sender: FDA-Public Use
  Company Number: AU-ROCHE-1170206

PATIENT
  Sex: Male

DRUGS (1)
  1. AVASTIN [Suspect]
     Indication: COLORECTAL CANCER METASTATIC
     Route: 065

REACTIONS (1)
  - Death [Fatal]
